FAERS Safety Report 16960732 (Version 2)
Quarter: 2019Q4

REPORT INFORMATION
  Report Type: Spontaneous
  Country: US (occurrence: US)
  Receive Date: 20191025
  Receipt Date: 20191112
  Transmission Date: 20200122
  Serious: Yes (Other)
  Sender: FDA-Public Use
  Company Number: US-BAYER-2019-193085

PATIENT
  Age: 18 Year
  Sex: Female

DRUGS (1)
  1. KYLEENA [Suspect]
     Active Substance: LEVONORGESTREL
     Indication: CONTRACEPTION
     Dosage: 17.5 MCG/24HR, CONT
     Route: 015
     Dates: start: 20190801, end: 20191015

REACTIONS (4)
  - Device dislocation [Recovered/Resolved]
  - Urinary tract infection [None]
  - Abdominal pain lower [None]
  - Abdominal discomfort [None]

NARRATIVE: CASE EVENT DATE: 20191015
